FAERS Safety Report 22029879 (Version 2)
Quarter: 2023Q1

REPORT INFORMATION
  Report Type: Spontaneous
  Country: US (occurrence: US)
  Receive Date: 20230223
  Receipt Date: 20230306
  Transmission Date: 20230418
  Serious: Yes (Hospitalization)
  Sender: FDA-Public Use
  Company Number: US-TEVA-2023-US-2857460

PATIENT
  Age: 37 Year
  Sex: Male
  Weight: 41 kg

DRUGS (13)
  1. PROPOFOL [Suspect]
     Active Substance: PROPOFOL
     Indication: General anaesthesia
     Dosage: 80 MG
     Route: 065
  2. PROPOFOL [Suspect]
     Active Substance: PROPOFOL
     Dosage: 50 MG
     Route: 065
  3. LIDOCAINE [Suspect]
     Active Substance: LIDOCAINE
     Indication: Local anaesthesia
     Dosage: RECEIVED 1.8 ML LIDOCAINE ALONG WITH EPINEPHRINE ON FIRST APPOINTMENT , LIDOCAINE: 2 %; ADDITIONAL I
     Route: 002
  4. LIDOCAINE [Suspect]
     Active Substance: LIDOCAINE
     Dosage: RECEIVED 3.6ML LIDOCAINE ALONG WITH EPINEPHRINE , 72 MG
     Route: 002
  5. ARTICAINE [Suspect]
     Active Substance: ARTICAINE
     Indication: Local anaesthesia
     Dosage: RECEIVED 3.6ML ARTICAINE ALONG WITH EPINEPHRINE , 144 MG , ARTICAINE: 4 %
     Route: 002
  6. ARTICAINE [Suspect]
     Active Substance: ARTICAINE
     Dosage: RECEIVED TWO DOSES OF 1.8ML OF ARTICAINE , 72 MG
     Route: 002
  7. MIDAZOLAM [Suspect]
     Active Substance: MIDAZOLAM
     Indication: General anaesthesia
     Dosage: RECEIVED 3 DOSES , 1 MG
     Route: 042
  8. SUCCINYLCHOLINE [Suspect]
     Active Substance: SUCCINYLCHOLINE
     Indication: General anaesthesia
     Dosage: 80 MG
     Route: 065
  9. EPINEPHRINE [Concomitant]
     Active Substance: EPINEPHRINE
     Indication: Product used for unknown indication
     Dosage: LIDOCAINE WITH 1:100 000 EPINEPHRINE
     Route: 002
  10. EPINEPHRINE [Concomitant]
     Active Substance: EPINEPHRINE
     Dosage: ARTICAINE WITH 1:100 000 EPINEPHRINE
     Route: 002
  11. SODIUM CHLORIDE [Concomitant]
     Active Substance: SODIUM CHLORIDE
     Indication: Product used for unknown indication
     Route: 042
  12. DOCUSATE [Concomitant]
     Active Substance: DOCUSATE
     Indication: Product used for unknown indication
     Route: 065
  13. SENNA [Concomitant]
     Active Substance: SENNA LEAF\SENNOSIDES\SENNOSIDES A AND B
     Indication: Product used for unknown indication
     Route: 065

REACTIONS (4)
  - Hypoxia [Unknown]
  - Electrocardiogram ST segment elevation [Recovered/Resolved]
  - Overdose [Unknown]
  - Toxicity to various agents [Unknown]
